FAERS Safety Report 15708173 (Version 2)
Quarter: 2019Q1

REPORT INFORMATION
  Report Type: Report from Study
  Country: US (occurrence: US)
  Receive Date: 20181211
  Receipt Date: 20190128
  Transmission Date: 20190417
  Serious: Yes (Hospitalization)
  Sender: FDA-Public Use
  Company Number: US-ROCHE-2193008

PATIENT
  Sex: Female
  Weight: 74.91 kg

DRUGS (2)
  1. ESBRIET [Suspect]
     Active Substance: PIRFENIDONE
     Indication: IDIOPATHIC PULMONARY FIBROSIS
     Route: 048
     Dates: start: 20180927
  2. OXYGEN 100% [Concomitant]
     Active Substance: OXYGEN
     Route: 055

REACTIONS (10)
  - Fall [Unknown]
  - Somnolence [Not Recovered/Not Resolved]
  - Abdominal discomfort [Unknown]
  - Pulmonary function test decreased [Unknown]
  - Nasal disorder [Not Recovered/Not Resolved]
  - Fatigue [Not Recovered/Not Resolved]
  - Cyanosis [Unknown]
  - Hypoacusis [Unknown]
  - Nasopharyngitis [Unknown]
  - Dyspnoea [Unknown]
